FAERS Safety Report 9728241 (Version 3)
Quarter: 2013Q4

REPORT INFORMATION
  Report Type: Report from Study
  Country: CA (occurrence: CA)
  Receive Date: 20131204
  Receipt Date: 20131211
  Transmission Date: 20140711
  Serious: Yes (Hospitalization)
  Sender: FDA-Public Use
  Company Number: CA-JNJFOC-20130914721

PATIENT
  Age: 57 Year
  Sex: Female
  Weight: 66.5 kg

DRUGS (2)
  1. REMICADE [Suspect]
     Indication: ANKYLOSING SPONDYLITIS
     Route: 042
     Dates: start: 20130923, end: 2013
  2. REMICADE [Suspect]
     Indication: ANKYLOSING SPONDYLITIS
     Route: 042
     Dates: start: 20130909

REACTIONS (3)
  - Cerebrovascular accident [Unknown]
  - Back pain [Recovering/Resolving]
  - Coccydynia [Recovering/Resolving]
